FAERS Safety Report 25398645 (Version 1)
Quarter: 2025Q2

REPORT INFORMATION
  Report Type: Report from Study
  Country: US (occurrence: US)
  Receive Date: 20250604
  Receipt Date: 20250604
  Transmission Date: 20250717
  Serious: No
  Sender: MALLINCKRODT
  Company Number: US-MALLINCKRODT-MNK202503087

PATIENT
  Sex: Female

DRUGS (1)
  1. CORTICOTROPIN [Suspect]
     Active Substance: CORTICOTROPIN
     Indication: Punctate keratitis
     Route: 058
     Dates: start: 20230529

REACTIONS (6)
  - Pruritus [Unknown]
  - Amnesia [Unknown]
  - Confusional state [Unknown]
  - Ill-defined disorder [Unknown]
  - Injection site swelling [Unknown]
  - Injection site erythema [Unknown]
